FAERS Safety Report 21996827 (Version 1)
Quarter: 2023Q1

REPORT INFORMATION
  Report Type: Spontaneous
  Country: NO (occurrence: NO)
  Receive Date: 20230215
  Receipt Date: 20230215
  Transmission Date: 20230417
  Serious: Yes (Other)
  Sender: FDA-Public Use
  Company Number: NO-JNJFOC-20230224281

PATIENT
  Sex: Female
  Weight: 77 kg

DRUGS (12)
  1. VELCADE [Suspect]
     Active Substance: BORTEZOMIB
     Indication: Plasma cell myeloma
     Dosage: UNK
     Route: 065
     Dates: start: 201810
  2. DEXAMETHASONE [Suspect]
     Active Substance: DEXAMETHASONE
     Indication: Plasma cell myeloma
     Dosage: UNK
     Route: 065
     Dates: start: 201810
  3. LENALIDOMIDE [Suspect]
     Active Substance: LENALIDOMIDE
     Indication: Plasma cell myeloma
     Dosage: UNK
     Route: 065
     Dates: start: 201810
  4. CALCIUM VITAMIN D3 [Concomitant]
     Indication: Osteoporosis
     Dosage: UNK
     Route: 065
  5. ESTRADIOL [Concomitant]
     Active Substance: ESTRADIOL
     Indication: Hypogonadism
     Dosage: 75 MICROGRAM, QD
     Route: 065
  6. VAGIFEM [Concomitant]
     Active Substance: ESTRADIOL
     Indication: Hypogonadism
     Dosage: 10 MICROGRAM
  7. TRIMEPRAZINE [Concomitant]
     Active Substance: TRIMEPRAZINE
     Indication: Insomnia
     Dosage: 20 MILLIGRAM
     Route: 065
  8. VALACYCLOVIR HYDROCHLORIDE [Concomitant]
     Active Substance: VALACYCLOVIR HYDROCHLORIDE
     Indication: Antiviral prophylaxis
     Dosage: 250 MILLIGRAM, BID
     Route: 065
  9. TRIMETOPRIM SULFAMETOXAZOLE CR [Concomitant]
     Indication: Prophylaxis
     Dosage: UNK UNK, QD
     Route: 065
  10. MELATONIN [Concomitant]
     Active Substance: MELATONIN
     Indication: Insomnia
     Dosage: 2 MILLIGRAM, QD
     Route: 065
  11. FOLIC ACID [Concomitant]
     Active Substance: FOLIC ACID
     Indication: Folate deficiency
     Dosage: 1 MILLIGRAM, QD
     Route: 065
  12. FENTANYL [Concomitant]
     Active Substance: FENTANYL
     Indication: Pain
     Dosage: UNK
     Route: 065

REACTIONS (1)
  - Plasma cell myeloma [Unknown]
